FAERS Safety Report 10710544 (Version 2)
Quarter: 2015Q1

REPORT INFORMATION
  Report Type: Spontaneous
  Country: JP (occurrence: JP)
  Receive Date: 20150114
  Receipt Date: 20150120
  Transmission Date: 20150721
  Serious: Yes (Other)
  Sender: FDA-Public Use
  Company Number: PHHY2015JP002778

PATIENT
  Age: 78 Year
  Sex: Male

DRUGS (1)
  1. GLIVEC [Suspect]
     Active Substance: IMATINIB MESYLATE
     Indication: CHRONIC MYELOID LEUKAEMIA
     Route: 048
     Dates: start: 2002

REACTIONS (3)
  - Second primary malignancy [Unknown]
  - Platelet count decreased [Unknown]
  - Prostate cancer [Unknown]

NARRATIVE: CASE EVENT DATE: 2005
